FAERS Safety Report 24875447 (Version 1)
Quarter: 2025Q1

REPORT INFORMATION
  Report Type: Spontaneous
  Country: US (occurrence: US)
  Receive Date: 20250122
  Receipt Date: 20250122
  Transmission Date: 20250409
  Serious: Yes (Hospitalization, Other)
  Sender: PFIZER
  Company Number: US-PFIZER INC-202300021921

PATIENT
  Age: 75 Year
  Sex: Male
  Weight: 129.27 kg

DRUGS (1)
  1. VYNDAMAX [Suspect]
     Active Substance: TAFAMIDIS
     Indication: Cardiac disorder
     Dosage: 61 MG, 1X/DAY

REACTIONS (3)
  - Food poisoning [Unknown]
  - Spinal cord injury [Unknown]
  - Gait disturbance [Unknown]
